FAERS Safety Report 7676439-8 (Version None)
Quarter: 2011Q3

REPORT INFORMATION
  Report Type: 
  Country: None (occurrence: None)
  Receive Date: 20110805
  Receipt Date: 20110727
  Transmission Date: 20111222
  Serious: Yes (Other)
  Sender: FDA-Public Use
  Company Number: 2009JP007432

PATIENT
  Age: 15 Year
  Sex: Male

DRUGS (3)
  1. GANCICLOVIR [Concomitant]
  2. METHOTREXATE [Concomitant]
  3. PROGRAF [Suspect]
     Indication: PROPHYLAXIS AGAINST GRAFT VERSUS HOST DISEASE

REACTIONS (3)
  - BONE MARROW TRANSPLANT [None]
  - CYTOMEGALOVIRUS VIRAEMIA [None]
  - BONE MARROW FAILURE [None]
